FAERS Safety Report 10734900 (Version 1)
Quarter: 2015Q1

REPORT INFORMATION
  Report Type: Report from Study
  Country: US (occurrence: US)
  Receive Date: 20150123
  Receipt Date: 20150123
  Transmission Date: 20150721
  Serious: Yes (Other)
  Sender: FDA-Public Use
  Company Number: US-CELGENEUS-USA-2014115286

PATIENT
  Age: 52 Year

DRUGS (6)
  1. VELCADE [Suspect]
     Active Substance: BORTEZOMIB
     Indication: PLASMA CELL MYELOMA
     Dosage: DAYS 1,4,8,11 PER CYCLE
     Route: 041
     Dates: start: 20100913, end: 20100923
  2. VELCADE [Suspect]
     Active Substance: BORTEZOMIB
     Dosage: DAYS 1,4,8,11 PER CYCLE
     Route: 040
     Dates: start: 20101102, end: 20101112
  3. REVLIMID [Suspect]
     Active Substance: LENALIDOMIDE
     Route: 048
     Dates: start: 20101102, end: 20121112
  4. DECADRON [Suspect]
     Active Substance: DEXAMETHASONE
     Dosage: DAYS 1,2,3,4,8,9,11,12
     Route: 048
     Dates: start: 20101102, end: 20101112
  5. REVLIMID [Suspect]
     Active Substance: LENALIDOMIDE
     Indication: PLASMA CELL MYELOMA
     Route: 048
     Dates: start: 20100913, end: 20100923
  6. DECADRON [Suspect]
     Active Substance: DEXAMETHASONE
     Indication: PLASMA CELL MYELOMA
     Dosage: DAYS 1,2,3,4,8,9,11,12
     Route: 048
     Dates: start: 20100913, end: 20100923

REACTIONS (6)
  - Asthenia [Unknown]
  - Diarrhoea [Unknown]
  - Hypotension [Unknown]
  - Pneumonia [Unknown]
  - Pain in extremity [Unknown]
  - Vomiting [Unknown]

NARRATIVE: CASE EVENT DATE: 20100924
